FAERS Safety Report 25040916 (Version 1)
Quarter: 2025Q1

REPORT INFORMATION
  Report Type: Spontaneous
  Country: US (occurrence: None)
  Receive Date: 20250304
  Receipt Date: 20250304
  Transmission Date: 20250408
  Serious: Yes (Hospitalization)
  Sender: FDA-CTU
  Company Number: None

PATIENT
  Age: 53 Year
  Sex: Female

DRUGS (24)
  1. LOKELMA [Suspect]
     Active Substance: SODIUM ZIRCONIUM CYCLOSILICATE
     Indication: Hyperkalaemia
     Dosage: 10 G GRAM(S) DAILY ORAL
     Route: 048
     Dates: start: 20250128
  2. TACROLIMUS [Suspect]
     Active Substance: TACROLIMUS
     Indication: Transplant
     Dosage: 5 MG TWICE A DAY ORAL ?
     Route: 048
     Dates: start: 20241211
  3. sulfamethoxazole/trimethoprim 800 mg/160 mg [Concomitant]
     Dates: start: 20241211
  4. Tab-a-vite with iron tablet [Concomitant]
     Dates: start: 20241211
  5. valacyclovir 500 mg tablet [Concomitant]
     Dates: start: 20241211
  6. calcium 600 mg with vitamin D 400 U [Concomitant]
     Dates: start: 20241211
  7. FOLIC ACID [Concomitant]
     Active Substance: FOLIC ACID
     Dates: start: 20241211, end: 20241231
  8. Mg plus protein 133 mg tablet [Concomitant]
     Dates: start: 20241211
  9. tacrolimus 0.5 mg capsule, tacrolimus 1 mg capsule [Concomitant]
     Dates: start: 20241211, end: 20241211
  10. vitamin D2 50,000 IU capsule [Concomitant]
     Dates: start: 20241211, end: 20250109
  11. senna 8.6 mg tablet [Concomitant]
     Dates: start: 20241211, end: 20250115
  12. PREDNISONE [Concomitant]
     Active Substance: PREDNISONE
     Dates: start: 20241211
  13. PREDNISONE [Concomitant]
     Active Substance: PREDNISONE
     Dates: start: 20241211, end: 20241211
  14. ipratropium/albuterol 0.5/3 mg inhalation solution [Concomitant]
     Dates: start: 20241211, end: 20241211
  15. acetaminophen 325 mg tablet [Concomitant]
     Dates: start: 20241211
  16. sodium chloride 0.9 % nebulization solution [Concomitant]
     Dates: start: 20241211
  17. bupropion SR 150 mg tablet [Concomitant]
     Dates: start: 20220331, end: 20241211
  18. citalopram 40 mg tablet [Concomitant]
     Dates: start: 20220429, end: 20241211
  19. enoxaparin 40 mg/0.4 mL syringe [Concomitant]
     Dates: start: 20241211, end: 20241231
  20. esomeprazole 20 mg capsule [Concomitant]
     Dates: start: 20241211, end: 20241231
  21. levothyroxine 100 mcg tablet [Concomitant]
     Dates: start: 20220429
  22. ATORVASTATIN [Concomitant]
     Active Substance: ATORVASTATIN
     Dates: start: 20220429, end: 20241211
  23. mycophenolate 500 mg tablet [Concomitant]
     Dates: start: 20241211, end: 20250127
  24. MYCOPHENOLIC ACID [Suspect]
     Active Substance: MYCOPHENOLIC ACID

REACTIONS (2)
  - Nephropathy toxic [None]
  - Renal disorder [None]

NARRATIVE: CASE EVENT DATE: 20250303
